FAERS Safety Report 17783352 (Version 1)
Quarter: 2020Q2

REPORT INFORMATION
  Report Type: Spontaneous
  Country: US (occurrence: US)
  Receive Date: 20200513
  Receipt Date: 20200513
  Transmission Date: 20200714
  Serious: No
  Sender: FDA-Public Use
  Company Number: None

PATIENT
  Sex: Female

DRUGS (1)
  1. STELARA [Suspect]
     Active Substance: USTEKINUMAB
     Indication: CROHN^S DISEASE
     Dosage: FREQUENCY: EVERY 4 WEEKS
     Route: 058
     Dates: start: 202003

REACTIONS (3)
  - Headache [None]
  - Asthenia [None]
  - Fatigue [None]
